FAERS Safety Report 8211785-0 (Version None)
Quarter: 2012Q1

REPORT INFORMATION
  Report Type: 
  Country: None (occurrence: None)
  Receive Date: 20120228
  Receipt Date: 20110927
  Transmission Date: 20120608
  Serious: Yes (Hospitalization)
  Sender: FDA-Public Use
  Company Number: RB-32392-2011

PATIENT
  Age: 63 Year
  Sex: Female

DRUGS (2)
  1. SUBOXONE [Suspect]
     Indication: DRUG DEPENDENCE
     Dosage: (2MG + 8MG DOSING SCHEDULE: 6-12 MG SUBLINGUAL), (1 MG SUBLINGUAL)
     Route: 060
     Dates: start: 20110201
  2. SUBOXONE [Suspect]
     Indication: DRUG DEPENDENCE
     Dosage: (2MG + 8MG DOSING SCHEDULE: 6-12 MG SUBLINGUAL), (1 MG SUBLINGUAL)
     Route: 060
     Dates: start: 20100101, end: 20110101

REACTIONS (4)
  - PNEUMONIA [None]
  - SUBSTANCE ABUSE [None]
  - DRUG DEPENDENCE [None]
  - RESPIRATORY FAILURE [None]
